FAERS Safety Report 20208406 (Version 1)
Quarter: 2021Q4

REPORT INFORMATION
  Report Type: Spontaneous
  Country: GB (occurrence: GB)
  Receive Date: 20211220
  Receipt Date: 20211220
  Transmission Date: 20220303
  Serious: Yes (Other)
  Sender: FDA-Public Use
  Company Number: None

PATIENT
  Age: 52 Year
  Sex: Female
  Weight: 88 kg

DRUGS (5)
  1. FLUCONAZOLE [Suspect]
     Active Substance: FLUCONAZOLE
     Indication: Candida infection
     Dosage: 50MG
     Route: 048
     Dates: start: 20211122, end: 20211128
  2. DAPAGLIFLOZIN [Concomitant]
     Active Substance: DAPAGLIFLOZIN
  3. GLICLAZIDE [Concomitant]
     Active Substance: GLICLAZIDE
  4. METFORMIN HYDROCHLORIDE [Concomitant]
     Active Substance: METFORMIN HYDROCHLORIDE
  5. RAMIPRIL [Concomitant]
     Active Substance: RAMIPRIL

REACTIONS (6)
  - Arthralgia [Recovering/Resolving]
  - Pruritus [Recovered/Resolved]
  - Skin exfoliation [Recovering/Resolving]
  - Pain in extremity [Unknown]
  - Contusion [Unknown]
  - Hypersensitivity [Unknown]

NARRATIVE: CASE EVENT DATE: 20211123
